FAERS Safety Report 10592892 (Version 1)
Quarter: 2014Q4

REPORT INFORMATION
  Report Type: Spontaneous
  Country: US (occurrence: None)
  Receive Date: 20141118
  Receipt Date: 20141118
  Transmission Date: 20150529
  Serious: Yes (Disabling)
  Sender: FDA-Public Use
  Company Number: None

PATIENT
  Age: 27 Year
  Sex: Male
  Weight: 77.11 kg

DRUGS (1)
  1. CIPROFLOXACIN. [Suspect]
     Active Substance: CIPROFLOXACIN
     Indication: EPIDIDYMITIS
     Route: 048

REACTIONS (5)
  - Anxiety [None]
  - Sleep disorder [None]
  - Fear [None]
  - Morbid thoughts [None]
  - Panic attack [None]

NARRATIVE: CASE EVENT DATE: 20140903
